FAERS Safety Report 8200990-5 (Version None)
Quarter: 2012Q1

REPORT INFORMATION
  Report Type: 
  Country: None (occurrence: None)
  Receive Date: 20120312
  Receipt Date: 20111110
  Transmission Date: 20120608
  Serious: No
  Sender: FDA-Public Use
  Company Number: US-ABBOTT-11P-163-0873061-00

PATIENT
  Sex: Female
  Weight: 59.02 kg

DRUGS (3)
  1. NORETHINDRONE [Concomitant]
     Indication: PRODUCT USED FOR UNKNOWN INDICATION
  2. LUPRON DEPOT [Suspect]
     Indication: ENDOMETRIOSIS
     Route: 030
     Dates: start: 20110901, end: 20110901
  3. MULTI-VITAMINS [Concomitant]
     Indication: PRODUCT USED FOR UNKNOWN INDICATION

REACTIONS (7)
  - HYPERTENSION [None]
  - NIGHT SWEATS [None]
  - ANXIETY [None]
  - SCREAMING [None]
  - HEADACHE [None]
  - CRYING [None]
  - FEELING ABNORMAL [None]
